FAERS Safety Report 13561727 (Version 4)
Quarter: 2017Q3

REPORT INFORMATION
  Report Type: Spontaneous
  Country: ES (occurrence: ES)
  Receive Date: 20170518
  Receipt Date: 20170829
  Transmission Date: 20171127
  Serious: Yes (Other)
  Sender: FDA-Public Use
  Company Number: ES-ALLERGAN-1719907US

PATIENT
  Age: 74 Year
  Sex: Female

DRUGS (1)
  1. OZURDEX [Suspect]
     Active Substance: DEXAMETHASONE
     Indication: DIABETIC RETINAL OEDEMA
     Dosage: 0.7 MG, SINGLE
     Route: 031
     Dates: start: 20170126

REACTIONS (5)
  - Lenticular injury [Recovered/Resolved with Sequelae]
  - Cataract [Unknown]
  - Complication of device insertion [Unknown]
  - Medication error [Unknown]
  - Vitreous disorder [Unknown]

NARRATIVE: CASE EVENT DATE: 20170126
